FAERS Safety Report 8511117-4 (Version None)
Quarter: 2012Q3

REPORT INFORMATION
  Report Type: 
  Country: None (occurrence: None)
  Receive Date: 20120716
  Receipt Date: 20120708
  Transmission Date: 20120928
  Serious: Yes (Disabling, Other)
  Sender: FDA-Public Use
  Company Number: EG-JNJFOC-20120704099

PATIENT
  Sex: Female
  Weight: 54 kg

DRUGS (5)
  1. RABEPRAZOLE SODIUM [Concomitant]
     Indication: GASTROOESOPHAGEAL REFLUX DISEASE
     Route: 048
  2. IBRUPROFEN [Concomitant]
     Indication: ANALGESIC THERAPY
     Route: 030
  3. PENTASA [Concomitant]
     Indication: COLITIS ULCERATIVE
     Route: 048
  4. REMICADE [Suspect]
     Indication: COLITIS ULCERATIVE
     Route: 042
     Dates: start: 20120708
  5. UNKNOWN MEDICATION [Concomitant]
     Route: 065

REACTIONS (6)
  - PYREXIA [None]
  - HEADACHE [None]
  - OEDEMA PERIPHERAL [None]
  - HYPOTENSION [None]
  - HEART RATE INCREASED [None]
  - FATIGUE [None]
